FAERS Safety Report 24074066 (Version 1)
Quarter: 2024Q3

REPORT INFORMATION
  Report Type: Spontaneous
  Country: IT (occurrence: IT)
  Receive Date: 20240710
  Receipt Date: 20240710
  Transmission Date: 20241017
  Serious: No
  Sender: PIERRE FABRE MEDICAMENT
  Company Number: IT-PFM-2024-02129

PATIENT
  Age: 57 Year
  Sex: Female

DRUGS (6)
  1. PROPRANOLOL [Suspect]
     Active Substance: PROPRANOLOL HYDROCHLORIDE
     Indication: Tremor
     Dosage: UNK
     Route: 065
  2. PROPRANOLOL [Suspect]
     Active Substance: PROPRANOLOL HYDROCHLORIDE
     Indication: Off label use
  3. BOTULINUM TOXIN NOS [Concomitant]
     Active Substance: BOTULINUM TOXIN NOS
     Indication: Tremor
     Dosage: UNK, INTO THE LARYNGEAL MUSCLES
     Route: 065
  4. PENICILLAMINE [Concomitant]
     Active Substance: PENICILLAMINE
     Indication: Hepato-lenticular degeneration
     Dosage: 300 MG, TID (3/DAY)
     Route: 065
  5. ZINC ACETATE DIHYDRATE [Concomitant]
     Indication: Hepato-lenticular degeneration
     Dosage: 150 MG/DAY
     Route: 065
  6. ZINC ACETATE DIHYDRATE [Concomitant]
     Dosage: 100 MG/DAY
     Route: 065

REACTIONS (4)
  - Product use issue [Unknown]
  - Product use issue [Unknown]
  - Product use in unapproved indication [Unknown]
  - Off label use [Unknown]
